FAERS Safety Report 8607127-9 (Version None)
Quarter: 2012Q3

REPORT INFORMATION
  Report Type: 
  Country: None (occurrence: None)
  Receive Date: 20120821
  Receipt Date: 20120809
  Transmission Date: 20120928
  Serious: Yes (Hospitalization)
  Sender: FDA-Public Use
  Company Number: US-BIOGENIDEC-2011BI004703

PATIENT
  Age: 47 Year
  Sex: Female

DRUGS (3)
  1. TYSABRI [Suspect]
     Indication: MULTIPLE SCLEROSIS
     Route: 042
     Dates: start: 20100630
  2. AVONEX [Concomitant]
     Indication: MULTIPLE SCLEROSIS
     Route: 030
     Dates: start: 20090101
  3. PROVIGIL [Concomitant]
     Indication: FATIGUE

REACTIONS (7)
  - CHAPPED LIPS [None]
  - LIP SWELLING [None]
  - LIP INJURY [None]
  - LIP HAEMORRHAGE [None]
  - LIP PAIN [None]
  - SCAR [None]
  - STAPHYLOCOCCAL INFECTION [None]
